FAERS Safety Report 9333446 (Version 2)
Quarter: 2013Q2

REPORT INFORMATION
  Report Type: Spontaneous
  Country: US (occurrence: US)
  Receive Date: 20130606
  Receipt Date: 20130628
  Transmission Date: 20140414
  Serious: Yes (Hospitalization, Other)
  Sender: FDA-Public Use
  Company Number: US-PURDUE-USA-2013-0103087

PATIENT
  Age: 75 Year
  Sex: Female
  Weight: 72.11 kg

DRUGS (2)
  1. BUTRANS [Suspect]
     Indication: PRODUCT USED FOR UNKNOWN INDICATION
     Dosage: UNKNOWN
     Route: 062
  2. OTHER NARCOTIC MEDICATION [Suspect]
     Indication: DRUG ABUSE
     Dosage: UNKNOWN

REACTIONS (2)
  - Drug abuse [Unknown]
  - Fall [Unknown]
